FAERS Safety Report 13096267 (Version 6)
Quarter: 2018Q2

REPORT INFORMATION
  Report Type: Spontaneous
  Country: US (occurrence: US)
  Receive Date: 20170109
  Receipt Date: 20180411
  Transmission Date: 20180711
  Serious: Yes (Hospitalization)
  Sender: FDA-Public Use
  Company Number: US-JNJFOC-20150903198

PATIENT
  Age: 77 Year
  Sex: Male

DRUGS (18)
  1. MULTIVITAMINS [Concomitant]
     Active Substance: VITAMINS
  2. IMBRUVICA [Suspect]
     Active Substance: IBRUTINIB
     Indication: CHRONIC LYMPHOCYTIC LEUKAEMIA
     Route: 048
     Dates: start: 20150612, end: 20170307
  3. AMOXICILLIN TRIHYDRATE AND POTASSIUM CLAVULAN [Concomitant]
     Active Substance: AMOXICILLIN\CLAVULANATE POTASSIUM
  4. NIFEDIPINE. [Concomitant]
     Active Substance: NIFEDIPINE
  5. GLUCOSAMINE [Concomitant]
     Active Substance: GLUCOSAMINE
  6. ALIGN [Concomitant]
     Active Substance: BIFIDOBACTERIUM LONGUM SUBSP. INFANTIS
  7. SOTALOL. [Concomitant]
     Active Substance: SOTALOL
  8. CALCIUM [Concomitant]
     Active Substance: CALCIUM
  9. LISINOPRIL. [Concomitant]
     Active Substance: LISINOPRIL
  10. ELIQUIS [Concomitant]
     Active Substance: APIXABAN
  11. IMBRUVICA [Suspect]
     Active Substance: IBRUTINIB
     Indication: CHRONIC LYMPHOCYTIC LEUKAEMIA
     Route: 048
     Dates: start: 2017
  12. ALLOPURINOL. [Concomitant]
     Active Substance: ALLOPURINOL
  13. AMOXICILLIN. [Concomitant]
     Active Substance: AMOXICILLIN
  14. TRAMADOL. [Concomitant]
     Active Substance: TRAMADOL
  15. IMBRUVICA [Suspect]
     Active Substance: IBRUTINIB
     Indication: CHRONIC LYMPHOCYTIC LEUKAEMIA
     Route: 048
     Dates: start: 20150420
  16. CITRUCEL [Concomitant]
     Active Substance: METHYLCELLULOSE (4000 MPA.S)
  17. GLUCOSAMINE AND CHONDROITIN SULFATE [Concomitant]
  18. MULTIVITAMINS [Concomitant]
     Active Substance: VITAMINS

REACTIONS (13)
  - Orthostatic hypotension [Unknown]
  - Feeling abnormal [Unknown]
  - Gastrointestinal disorder [Unknown]
  - Rhinorrhoea [Unknown]
  - Asthenia [Unknown]
  - Fall [Unknown]
  - Blood pressure increased [Unknown]
  - Upper limb fracture [Unknown]
  - Oedema peripheral [Unknown]
  - Loss of consciousness [Unknown]
  - Atrial fibrillation [Unknown]
  - Hip fracture [Unknown]
  - Muscle spasms [Unknown]

NARRATIVE: CASE EVENT DATE: 2015
